FAERS Safety Report 19750912 (Version 1)
Quarter: 2021Q3

REPORT INFORMATION
  Report Type: Spontaneous
  Country: CA (occurrence: CA)
  Receive Date: 20210826
  Receipt Date: 20210826
  Transmission Date: 20211014
  Serious: Yes (Life-Threatening, Hospitalization, Other)
  Sender: FDA-Public Use
  Company Number: CA-PFIZER INC-202101063463

PATIENT
  Age: 14 Year
  Sex: Male
  Weight: 42 kg

DRUGS (35)
  1. HYDROCORTISONE. [Concomitant]
     Active Substance: HYDROCORTISONE
  2. MYCAMINE [Concomitant]
     Active Substance: MICAFUNGIN SODIUM
  3. POTASSIUM [Concomitant]
     Active Substance: POTASSIUM
  4. CARBOPLATIN. [Suspect]
     Active Substance: CARBOPLATIN
     Indication: BURKITT^S LYMPHOMA RECURRENT
     Dosage: 525 MG
     Route: 041
  5. FASTURTEC [Concomitant]
     Active Substance: RASBURICASE
  6. PHYTONADIONE. [Concomitant]
     Active Substance: PHYTONADIONE
  7. MIDAZOLAM. [Concomitant]
     Active Substance: MIDAZOLAM
  8. CYCLOPHOSPHAMIDE. [Suspect]
     Active Substance: CYCLOPHOSPHAMIDE
     Indication: BURKITT^S LYMPHOMA RECURRENT
     Dosage: 400 MG
     Route: 041
  9. IFOSFAMIDE FOR INJECTION [Suspect]
     Active Substance: IFOSFAMIDE
     Indication: BURKITT^S LYMPHOMA RECURRENT
     Dosage: 2360 MG
     Route: 041
  10. ALLOPURINOL. [Concomitant]
     Active Substance: ALLOPURINOL
  11. METHYLPREDNISOLONE. [Concomitant]
     Active Substance: METHYLPREDNISOLONE
  12. POLYETHYLENE GLYCOL 3350. [Concomitant]
     Active Substance: POLYETHYLENE GLYCOL 3350
  13. TRIMETHOPRIM SULFAMETHOXAZOLE [Concomitant]
     Active Substance: SULFAMETHOXAZOLE\TRIMETHOPRIM
  14. VINCRISTINE SULFATE. [Suspect]
     Active Substance: VINCRISTINE SULFATE
     Indication: BURKITT^S LYMPHOMA RECURRENT
     Dosage: 1.3 MG
     Route: 041
  15. CHOLECALCIFEROL [Concomitant]
     Active Substance: CHOLECALCIFEROL
  16. HYDROCORTISONE. [Concomitant]
     Active Substance: HYDROCORTISONE
  17. MEROPENEM. [Concomitant]
     Active Substance: MEROPENEM
  18. OLANZAPINE. [Concomitant]
     Active Substance: OLANZAPINE
  19. METHOTREXATE SODIUM. [Suspect]
     Active Substance: METHOTREXATE SODIUM
     Indication: BURKITT^S LYMPHOMA RECURRENT
     Dosage: 15 MG
     Route: 037
  20. RITUXAN [Suspect]
     Active Substance: RITUXIMAB
     Indication: BURKITT^S LYMPHOMA RECURRENT
     Dosage: 480 MG
     Route: 042
  21. LEVOFLOXACIN. [Concomitant]
     Active Substance: LEVOFLOXACIN
  22. VANCOMYCIN [Concomitant]
     Active Substance: VANCOMYCIN
  23. CYTARABINE. [Suspect]
     Active Substance: CYTARABINE
     Indication: BURKITT^S LYMPHOMA RECURRENT
     Dosage: 30 MG
     Route: 037
  24. CALCIUM + VITAMIN D3 [Concomitant]
     Active Substance: CALCIUM CARBONATE\CHOLECALCIFEROL
  25. CEFOTAXIME [Concomitant]
     Active Substance: CEFOTAXIME SODIUM
  26. FAMOTIDINE. [Concomitant]
     Active Substance: FAMOTIDINE
  27. HYDROMORPHONE [Concomitant]
     Active Substance: HYDROMORPHONE
  28. LEVETIRACETAM. [Concomitant]
     Active Substance: LEVETIRACETAM
     Route: 065
  29. MAGNESIUM [Concomitant]
     Active Substance: MAGNESIUM
  30. ETOPOSIDE. [Suspect]
     Active Substance: ETOPOSIDE
     Indication: BURKITT^S LYMPHOMA RECURRENT
     Dosage: 130 MG
     Route: 041
  31. ACYCLOVIR [ACICLOVIR] [Concomitant]
     Active Substance: ACYCLOVIR
  32. FLUCONAZOLE. [Concomitant]
     Active Substance: FLUCONAZOLE
  33. ONDANSETRON [Concomitant]
     Active Substance: ONDANSETRON
  34. PIPERACILLINA/TAZOBACTAM [Concomitant]
     Active Substance: PIPERACILLIN SODIUM\TAZOBACTAM SODIUM
  35. VALACYCLOVIR [Concomitant]
     Active Substance: VALACYCLOVIR HYDROCHLORIDE

REACTIONS (1)
  - Aplastic anaemia [Not Recovered/Not Resolved]
